FAERS Safety Report 10884140 (Version 1)
Quarter: 2015Q1

REPORT INFORMATION
  Report Type: Spontaneous
  Country: US (occurrence: US)
  Receive Date: 20150304
  Receipt Date: 20150304
  Transmission Date: 20150721
  Serious: No
  Sender: FDA-Public Use
  Company Number: US-BIOGENIDEC-2015BI016883

PATIENT
  Age: 61 Year
  Sex: Female

DRUGS (1)
  1. TECFIDERA [Suspect]
     Active Substance: DIMETHYL FUMARATE
     Indication: RELAPSING-REMITTING MULTIPLE SCLEROSIS
     Route: 048
     Dates: start: 20141226, end: 201502

REACTIONS (17)
  - Malaise [Not Recovered/Not Resolved]
  - Rash erythematous [Not Recovered/Not Resolved]
  - Rash [Recovered/Resolved]
  - Mental impairment [Unknown]
  - Rhinorrhoea [Not Recovered/Not Resolved]
  - Epistaxis [Recovered/Resolved]
  - Miosis [Not Recovered/Not Resolved]
  - Erythema [Not Recovered/Not Resolved]
  - Tremor [Not Recovered/Not Resolved]
  - Memory impairment [Unknown]
  - Feeling of body temperature change [Not Recovered/Not Resolved]
  - Adverse drug reaction [Not Recovered/Not Resolved]
  - Visual impairment [Not Recovered/Not Resolved]
  - Peripheral swelling [Not Recovered/Not Resolved]
  - Feeling hot [Not Recovered/Not Resolved]
  - Vomiting [Recovered/Resolved]
  - Generalised erythema [Recovered/Resolved]

NARRATIVE: CASE EVENT DATE: 20141226
